FAERS Safety Report 10526376 (Version 1)
Quarter: 2014Q4

REPORT INFORMATION
  Report Type: Spontaneous
  Country: FJ (occurrence: FJ)
  Receive Date: 20141019
  Receipt Date: 20141019
  Transmission Date: 20150528
  Serious: Yes (Hospitalization)
  Sender: FDA-Public Use
  Company Number: FJ-BRISTOL-MYERS SQUIBB COMPANY-21503503

PATIENT
  Age: 66 Year
  Sex: Male

DRUGS (4)
  1. LIPEX [Suspect]
     Active Substance: SIMVASTATIN
  2. DANACOL [Suspect]
     Active Substance: 4-HYDROXY-3-METHOXYBENZENESULFONIC ACID\ACETAMINOPHEN\CAFFEINE\CHLORPHENIRAMINE MALEATE\ETHENZAMIDE\NOSCAPINE\RIBOFLAVIN
  3. METFORMIN [Suspect]
     Active Substance: METFORMIN HYDROCHLORIDE
  4. NIFEDIPINE. [Suspect]
     Active Substance: NIFEDIPINE

REACTIONS (1)
  - Cerebrovascular accident [Unknown]
